FAERS Safety Report 23340284 (Version 3)
Quarter: 2024Q1

REPORT INFORMATION
  Report Type: Spontaneous
  Country: JP (occurrence: JP)
  Receive Date: 20231227
  Receipt Date: 20240308
  Transmission Date: 20240410
  Serious: Yes (Other)
  Sender: FDA-Public Use
  Company Number: JP-MSD-2312JPN002843J

PATIENT
  Age: 81 Year
  Sex: Male

DRUGS (3)
  1. KEYTRUDA [Suspect]
     Active Substance: PEMBROLIZUMAB
     Indication: Lung adenocarcinoma stage I
     Dosage: 200 MILLIGRAM, Q3W
     Route: 041
     Dates: start: 202306, end: 202309
  2. CARBOPLATIN [Concomitant]
     Active Substance: CARBOPLATIN
     Indication: Lung adenocarcinoma stage I
     Dosage: UNK
     Route: 065
     Dates: start: 202306, end: 202308
  3. PEMETREXED [Concomitant]
     Active Substance: PEMETREXED
     Indication: Lung adenocarcinoma stage I
     Dosage: UNK
     Route: 065
     Dates: start: 202306, end: 202309

REACTIONS (2)
  - Malignant ascites [Unknown]
  - Drug ineffective [Unknown]
